FAERS Safety Report 8835237 (Version 1)
Quarter: 2012Q4

REPORT INFORMATION
  Report Type: 
  Country: LK (occurrence: LK)
  Receive Date: 20121011
  Receipt Date: 20121011
  Transmission Date: 20130627
  Serious: Yes (Other)
  Sender: FDA-Public Use
  Company Number: LK-ROCHE-1143434

PATIENT
  Age: 16 Year
  Sex: Female
  Weight: 65 kg

DRUGS (1)
  1. TOCILIZUMAB [Suspect]
     Indication: JUVENILE ARTHRITIS
     Route: 065
     Dates: start: 20120915

REACTIONS (1)
  - Pain [Unknown]
